FAERS Safety Report 24118306 (Version 3)
Quarter: 2025Q4

REPORT INFORMATION
  Report Type: Spontaneous
  Country: CA (occurrence: CA)
  Receive Date: 20240722
  Receipt Date: 20251223
  Transmission Date: 20260117
  Serious: Yes (Life-Threatening, Hospitalization, Disabling, Other)
  Sender: BRISTOL-MYERS SQUIBB COMPANY
  Company Number: CA-BRISTOL-MYERS SQUIBB COMPANY-2024-114698

PATIENT
  Age: 40 Year
  Sex: Female

DRUGS (538)
  1. TRIAMCINOLONE ACETONIDE [Suspect]
     Active Substance: TRIAMCINOLONE ACETONIDE
     Indication: Rheumatoid arthritis
     Route: 014
  2. ORENCIA [Suspect]
     Active Substance: ABATACEPT
     Indication: Rheumatoid arthritis
     Route: 040
  3. ORENCIA [Suspect]
     Active Substance: ABATACEPT
     Route: 040
  4. ORENCIA [Suspect]
     Active Substance: ABATACEPT
     Indication: Rheumatoid arthritis
     Route: 058
  5. ORENCIA [Suspect]
     Active Substance: ABATACEPT
     Route: 041
  6. ORENCIA [Suspect]
     Active Substance: ABATACEPT
  7. ORENCIA [Suspect]
     Active Substance: ABATACEPT
     Route: 041
  8. ORENCIA [Suspect]
     Active Substance: ABATACEPT
  9. ORENCIA [Suspect]
     Active Substance: ABATACEPT
  10. ORENCIA [Suspect]
     Active Substance: ABATACEPT
  11. ORENCIA [Suspect]
     Active Substance: ABATACEPT
  12. ORENCIA [Suspect]
     Active Substance: ABATACEPT
     Indication: Rheumatoid arthritis
  13. ORENCIA [Suspect]
     Active Substance: ABATACEPT
  14. ORENCIA [Suspect]
     Active Substance: ABATACEPT
  15. ORENCIA [Suspect]
     Active Substance: ABATACEPT
  16. ORENCIA [Suspect]
     Active Substance: ABATACEPT
  17. ACETAMINOPHEN [Concomitant]
     Active Substance: ACETAMINOPHEN
     Indication: Rheumatoid arthritis
  18. ACETAMINOPHEN [Concomitant]
     Active Substance: ACETAMINOPHEN
  19. ACETAMINOPHEN [Concomitant]
     Active Substance: ACETAMINOPHEN
  20. ACTEMRA [Concomitant]
     Active Substance: TOCILIZUMAB
     Indication: Rheumatoid arthritis
  21. ACTEMRA [Concomitant]
     Active Substance: TOCILIZUMAB
     Route: 058
  22. ACTEMRA [Concomitant]
     Active Substance: TOCILIZUMAB
     Route: 040
  23. ACTEMRA [Concomitant]
     Active Substance: TOCILIZUMAB
     Route: 058
  24. ACTEMRA [Concomitant]
     Active Substance: TOCILIZUMAB
     Route: 040
  25. ACTEMRA [Concomitant]
     Active Substance: TOCILIZUMAB
  26. ACTEMRA [Concomitant]
     Active Substance: TOCILIZUMAB
     Route: 058
  27. ACTEMRA [Concomitant]
     Active Substance: TOCILIZUMAB
     Route: 058
  28. ACTEMRA [Concomitant]
     Active Substance: TOCILIZUMAB
     Route: 058
  29. ACTEMRA [Concomitant]
     Active Substance: TOCILIZUMAB
     Route: 058
  30. ACTEMRA [Concomitant]
     Active Substance: TOCILIZUMAB
     Route: 040
  31. ACTEMRA [Concomitant]
     Active Substance: TOCILIZUMAB
     Route: 040
  32. ACTEMRA [Concomitant]
     Active Substance: TOCILIZUMAB
     Route: 016
  33. ACTEMRA [Concomitant]
     Active Substance: TOCILIZUMAB
     Route: 040
  34. ACTEMRA [Concomitant]
     Active Substance: TOCILIZUMAB
     Route: 040
  35. ACTEMRA [Concomitant]
     Active Substance: TOCILIZUMAB
     Route: 058
  36. ACTEMRA [Concomitant]
     Active Substance: TOCILIZUMAB
  37. ACTEMRA [Concomitant]
     Active Substance: TOCILIZUMAB
     Dosage: SOLUTION SUBCUTANEOUS
     Route: 058
  38. ACTEMRA [Concomitant]
     Active Substance: TOCILIZUMAB
     Route: 042
  39. ACTEMRA [Concomitant]
     Active Substance: TOCILIZUMAB
     Route: 016
  40. ACTEMRA [Concomitant]
     Active Substance: TOCILIZUMAB
     Route: 042
  41. ACTEMRA [Concomitant]
     Active Substance: TOCILIZUMAB
     Route: 042
  42. ACTEMRA [Concomitant]
     Active Substance: TOCILIZUMAB
     Route: 058
  43. ACTEMRA [Concomitant]
     Active Substance: TOCILIZUMAB
     Route: 058
  44. ACTEMRA [Concomitant]
     Active Substance: TOCILIZUMAB
  45. ACTEMRA [Concomitant]
     Active Substance: TOCILIZUMAB
     Route: 042
  46. ACTEMRA [Concomitant]
     Active Substance: TOCILIZUMAB
     Route: 058
  47. ACTEMRA [Concomitant]
     Active Substance: TOCILIZUMAB
  48. ACTEMRA [Concomitant]
     Active Substance: TOCILIZUMAB
  49. ACTEMRA [Concomitant]
     Active Substance: TOCILIZUMAB
     Route: 058
  50. ACTEMRA [Concomitant]
     Active Substance: TOCILIZUMAB
     Route: 058
  51. ACTEMRA [Concomitant]
     Active Substance: TOCILIZUMAB
     Route: 042
  52. ACTEMRA [Concomitant]
     Active Substance: TOCILIZUMAB
     Route: 040
  53. ACTEMRA [Concomitant]
     Active Substance: TOCILIZUMAB
     Route: 040
  54. ACTEMRA [Concomitant]
     Active Substance: TOCILIZUMAB
     Route: 040
  55. ACTEMRA [Concomitant]
     Active Substance: TOCILIZUMAB
  56. ACTEMRA [Concomitant]
     Active Substance: TOCILIZUMAB
     Route: 042
  57. ADALIMUMAB [Concomitant]
     Active Substance: ADALIMUMAB
     Indication: Rheumatoid arthritis
     Route: 058
  58. ADALIMUMAB [Concomitant]
     Active Substance: ADALIMUMAB
     Route: 058
  59. ADALIMUMAB [Concomitant]
     Active Substance: ADALIMUMAB
     Dosage: SOLUTION?SUBCUTANEOUS
     Route: 058
  60. AIMOVIG [Concomitant]
     Active Substance: ERENUMAB-AOOE
     Indication: Psoriatic arthropathy
  61. ALENDRONIC ACID [Concomitant]
     Active Substance: ALENDRONIC ACID
     Indication: Rheumatoid arthritis
  62. ALENDRONIC ACID [Concomitant]
     Active Substance: ALENDRONIC ACID
     Route: 016
  63. ALENDRONIC ACID [Concomitant]
     Active Substance: ALENDRONIC ACID
     Route: 048
  64. ALENDRONIC ACID [Concomitant]
     Active Substance: ALENDRONIC ACID
     Route: 005
  65. ALENDRONIC ACID [Concomitant]
     Active Substance: ALENDRONIC ACID
     Route: 048
  66. ALENDRONIC ACID [Concomitant]
     Active Substance: ALENDRONIC ACID
  67. ALENDRONIC ACID [Concomitant]
     Active Substance: ALENDRONIC ACID
     Route: 048
  68. APO-DICLO [Concomitant]
     Indication: Product used for unknown indication
     Dosage: TABLET (ENTERIC- COATED)
  69. LEFLUNOMIDE [Concomitant]
     Active Substance: LEFLUNOMIDE
     Indication: Rheumatoid arthritis
  70. LEFLUNOMIDE [Concomitant]
     Active Substance: LEFLUNOMIDE
  71. LEFLUNOMIDE [Concomitant]
     Active Substance: LEFLUNOMIDE
     Route: 048
  72. PREDNISONE [Concomitant]
     Active Substance: PREDNISONE
     Indication: Rheumatoid arthritis
     Route: 048
  73. PREDNISONE [Concomitant]
     Active Substance: PREDNISONE
     Route: 048
  74. PREDNISONE [Concomitant]
     Active Substance: PREDNISONE
  75. PREDNISONE [Concomitant]
     Active Substance: PREDNISONE
  76. PREDNISONE [Concomitant]
     Active Substance: PREDNISONE
  77. PREDNISONE [Concomitant]
     Active Substance: PREDNISONE
  78. PREDNISONE [Concomitant]
     Active Substance: PREDNISONE
     Route: 048
  79. APREMILAST [Concomitant]
     Active Substance: APREMILAST
     Indication: Rheumatoid arthritis
  80. APREMILAST [Concomitant]
     Active Substance: APREMILAST
  81. APREMILAST [Concomitant]
     Active Substance: APREMILAST
  82. ARAVA [Concomitant]
     Active Substance: LEFLUNOMIDE
     Indication: Rheumatoid arthritis
     Route: 048
  83. ARAVA [Concomitant]
     Active Substance: LEFLUNOMIDE
  84. ARAVA [Concomitant]
     Active Substance: LEFLUNOMIDE
     Route: 048
  85. ARAVA [Concomitant]
     Active Substance: LEFLUNOMIDE
     Route: 048
  86. ARAVA [Concomitant]
     Active Substance: LEFLUNOMIDE
     Route: 048
  87. ARAVA [Concomitant]
     Active Substance: LEFLUNOMIDE
  88. ARAVA [Concomitant]
     Active Substance: LEFLUNOMIDE
     Route: 005
  89. ARAVA [Concomitant]
     Active Substance: LEFLUNOMIDE
     Route: 048
  90. ARAVA [Concomitant]
     Active Substance: LEFLUNOMIDE
     Route: 048
  91. ARAVA [Concomitant]
     Active Substance: LEFLUNOMIDE
     Route: 048
  92. ARAVA [Concomitant]
     Active Substance: LEFLUNOMIDE
     Route: 048
  93. ATOMOXETINE [Concomitant]
     Active Substance: ATOMOXETINE
     Indication: Migraine
  94. ATOMOXETINE [Concomitant]
     Active Substance: ATOMOXETINE
  95. AZATHIOPRINE SODIUM [Concomitant]
     Active Substance: AZATHIOPRINE SODIUM
     Indication: Product used for unknown indication
  96. BERINERT [Concomitant]
     Active Substance: HUMAN C1-ESTERASE INHIBITOR
     Indication: Product used for unknown indication
  97. BOTULINUM TOXIN TYPE A [Concomitant]
     Active Substance: BOTULINUM TOXIN TYPE A
     Indication: Product used for unknown indication
     Dosage: POWDER FOR SOLUTION
  98. BUTRANS [Concomitant]
     Active Substance: BUPRENORPHINE
     Indication: Product used for unknown indication
  99. CALCIUM CARBONATE [Concomitant]
     Active Substance: CALCIUM CARBONATE
     Indication: Rheumatoid arthritis
  100. CANDESARTAN [Concomitant]
     Active Substance: CANDESARTAN
     Indication: Migraine
     Route: 048
  101. CANDESARTAN [Concomitant]
     Active Substance: CANDESARTAN
     Route: 048
  102. CERTOLIZUMAB PEGOL [Concomitant]
     Active Substance: CERTOLIZUMAB PEGOL
     Indication: Product used for unknown indication
     Route: 058
  103. CERTOLIZUMAB PEGOL [Concomitant]
     Active Substance: CERTOLIZUMAB PEGOL
  104. CERTOLIZUMAB PEGOL [Concomitant]
     Active Substance: CERTOLIZUMAB PEGOL
     Route: 058
  105. CERTOLIZUMAB PEGOL [Concomitant]
     Active Substance: CERTOLIZUMAB PEGOL
     Route: 005
  106. CETIRIZINE HYDROCHLORIDE [Concomitant]
     Active Substance: CETIRIZINE HYDROCHLORIDE
     Indication: Rheumatoid arthritis
  107. CETIRIZINE HYDROCHLORIDE [Concomitant]
     Active Substance: CETIRIZINE HYDROCHLORIDE
  108. CETIRIZINE HYDROCHLORIDE [Concomitant]
     Active Substance: CETIRIZINE HYDROCHLORIDE
  109. CETIRIZINE HYDROCHLORIDE [Concomitant]
     Active Substance: CETIRIZINE HYDROCHLORIDE
  110. CETIRIZINE HYDROCHLORIDE [Concomitant]
     Active Substance: CETIRIZINE HYDROCHLORIDE
  111. CETIRIZINE HYDROCHLORIDE [Concomitant]
     Active Substance: CETIRIZINE HYDROCHLORIDE
  112. CETIRIZINE HYDROCHLORIDE [Concomitant]
     Active Substance: CETIRIZINE HYDROCHLORIDE
     Route: 048
  113. CETIRIZINE HYDROCHLORIDE [Concomitant]
     Active Substance: CETIRIZINE HYDROCHLORIDE
  114. CETIRIZINE HYDROCHLORIDE [Concomitant]
     Active Substance: CETIRIZINE HYDROCHLORIDE
     Route: 048
  115. CETIRIZINE HYDROCHLORIDE [Concomitant]
     Active Substance: CETIRIZINE HYDROCHLORIDE
  116. CETIRIZINE HYDROCHLORIDE [Concomitant]
     Active Substance: CETIRIZINE HYDROCHLORIDE
     Route: 048
  117. CETIRIZINE HYDROCHLORIDE [Concomitant]
     Active Substance: CETIRIZINE HYDROCHLORIDE
  118. CETIRIZINE HYDROCHLORIDE [Concomitant]
     Active Substance: CETIRIZINE HYDROCHLORIDE
     Route: 048
  119. CETIRIZINE HYDROCHLORIDE [Concomitant]
     Active Substance: CETIRIZINE HYDROCHLORIDE
  120. CETIRIZINE HYDROCHLORIDE [Concomitant]
     Active Substance: CETIRIZINE HYDROCHLORIDE
  121. CETIRIZINE HYDROCHLORIDE [Concomitant]
     Active Substance: CETIRIZINE HYDROCHLORIDE
  122. CETIRIZINE HYDROCHLORIDE [Concomitant]
     Active Substance: CETIRIZINE HYDROCHLORIDE
     Route: 016
  123. CHLORHEXIDINE GLUCONATE [Concomitant]
     Active Substance: CHLORHEXIDINE GLUCONATE
     Indication: Product used for unknown indication
  124. CHLORHEXIDINE GLUCONATE [Concomitant]
     Active Substance: CHLORHEXIDINE GLUCONATE
  125. CHOLECALCIFEROL [Concomitant]
     Active Substance: CHOLECALCIFEROL
     Indication: Product used for unknown indication
  126. CIMZIA [Concomitant]
     Active Substance: CERTOLIZUMAB PEGOL
     Indication: Rheumatoid arthritis
  127. CIMZIA [Concomitant]
     Active Substance: CERTOLIZUMAB PEGOL
     Indication: Psoriasis
     Route: 058
  128. CIMZIA [Concomitant]
     Active Substance: CERTOLIZUMAB PEGOL
     Route: 005
  129. CIMZIA [Concomitant]
     Active Substance: CERTOLIZUMAB PEGOL
     Route: 058
  130. CIMZIA [Concomitant]
     Active Substance: CERTOLIZUMAB PEGOL
     Route: 058
  131. CORTISONE ACETATE [Concomitant]
     Active Substance: CORTISONE ACETATE
     Indication: Rheumatoid arthritis
     Route: 048
  132. CORTISONE ACETATE [Concomitant]
     Active Substance: CORTISONE ACETATE
  133. CORTISONE ACETATE [Concomitant]
     Active Substance: CORTISONE ACETATE
  134. COSENTYX [Concomitant]
     Active Substance: SECUKINUMAB
     Indication: Rheumatoid arthritis
  135. COSENTYX [Concomitant]
     Active Substance: SECUKINUMAB
     Indication: Psoriatic arthropathy
  136. COSENTYX [Concomitant]
     Active Substance: SECUKINUMAB
     Route: 005
  137. DESOXIMETASONE [Concomitant]
     Active Substance: DESOXIMETASONE
     Indication: Rheumatoid arthritis
  138. DESOXIMETASONE [Concomitant]
     Active Substance: DESOXIMETASONE
     Route: 048
  139. DESOXIMETASONE [Concomitant]
     Active Substance: DESOXIMETASONE
  140. DESOXIMETASONE [Concomitant]
     Active Substance: DESOXIMETASONE
     Route: 048
  141. DESOXIMETASONE [Concomitant]
     Active Substance: DESOXIMETASONE
     Route: 058
  142. DESOXIMETASONE [Concomitant]
     Active Substance: DESOXIMETASONE
  143. DESOXIMETASONE [Concomitant]
     Active Substance: DESOXIMETASONE
     Route: 048
  144. DESOXIMETASONE [Concomitant]
     Active Substance: DESOXIMETASONE
     Route: 003
  145. DESOXIMETASONE [Concomitant]
     Active Substance: DESOXIMETASONE
     Route: 058
  146. DESOXIMETASONE [Concomitant]
     Active Substance: DESOXIMETASONE
     Route: 048
  147. DESOXIMETASONE [Concomitant]
     Active Substance: DESOXIMETASONE
     Route: 048
  148. DESOXIMETASONE [Concomitant]
     Active Substance: DESOXIMETASONE
     Route: 003
  149. DESOXIMETASONE [Concomitant]
     Active Substance: DESOXIMETASONE
     Route: 048
  150. DESOXIMETASONE [Concomitant]
     Active Substance: DESOXIMETASONE
  151. DESOXIMETASONE [Concomitant]
     Active Substance: DESOXIMETASONE
     Route: 058
  152. DICLOFENAC DIETHYLAMINE [Concomitant]
     Active Substance: DICLOFENAC DIETHYLAMINE
     Indication: Product used for unknown indication
  153. DICLOFENAC SODIUM [Concomitant]
     Active Substance: DICLOFENAC SODIUM
     Indication: Product used for unknown indication
  154. DICLOFENAC SODIUM [Concomitant]
     Active Substance: DICLOFENAC SODIUM
  155. DICLOFENAC SODIUM [Concomitant]
     Active Substance: DICLOFENAC SODIUM
     Route: 058
  156. DOMPERIDONE MALEATE [Concomitant]
     Active Substance: DOMPERIDONE MALEATE
     Indication: Product used for unknown indication
  157. ENBREL [Concomitant]
     Active Substance: ETANERCEPT
     Indication: Rheumatoid arthritis
     Route: 058
  158. ENBREL [Concomitant]
     Active Substance: ETANERCEPT
  159. ENBREL [Concomitant]
     Active Substance: ETANERCEPT
  160. ENBREL [Concomitant]
     Active Substance: ETANERCEPT
     Route: 058
  161. ENBREL [Concomitant]
     Active Substance: ETANERCEPT
     Route: 058
  162. ENBREL [Concomitant]
     Active Substance: ETANERCEPT
     Route: 058
  163. ENBREL [Concomitant]
     Active Substance: ETANERCEPT
  164. ERELZI [Concomitant]
     Active Substance: ETANERCEPT-SZZS
     Indication: Rheumatoid arthritis
     Route: 058
  165. ERELZI [Concomitant]
     Active Substance: ETANERCEPT-SZZS
  166. ERELZI [Concomitant]
     Active Substance: ETANERCEPT-SZZS
     Route: 058
  167. FLUMETHASONE [Concomitant]
     Active Substance: FLUMETHASONE
     Indication: Product used for unknown indication
  168. FLUMETHASONE PIVALATE [Concomitant]
     Active Substance: FLUMETHASONE PIVALATE
     Indication: Product used for unknown indication
  169. FLUMETHASONE PIVALATE [Concomitant]
     Active Substance: FLUMETHASONE PIVALATE
     Route: 003
  170. FOLIC ACID [Concomitant]
     Active Substance: FOLIC ACID
     Indication: Rheumatoid arthritis
  171. FOLIC ACID [Concomitant]
     Active Substance: FOLIC ACID
     Route: 048
  172. FOLIC ACID [Concomitant]
     Active Substance: FOLIC ACID
  173. FOLIC ACID [Concomitant]
     Active Substance: FOLIC ACID
     Route: 058
  174. FOLIC ACID [Concomitant]
     Active Substance: FOLIC ACID
  175. FOLIC ACID [Concomitant]
     Active Substance: FOLIC ACID
  176. FOLIC ACID [Concomitant]
     Active Substance: FOLIC ACID
  177. FOLIC ACID [Concomitant]
     Active Substance: FOLIC ACID
  178. FOLIC ACID [Concomitant]
     Active Substance: FOLIC ACID
  179. FOLIC ACID [Concomitant]
     Active Substance: FOLIC ACID
     Route: 048
  180. FOLIC ACID [Concomitant]
     Active Substance: FOLIC ACID
     Route: 048
  181. FOLIC ACID [Concomitant]
     Active Substance: FOLIC ACID
  182. FOLIC ACID [Concomitant]
     Active Substance: FOLIC ACID
     Route: 048
  183. FOLIC ACID [Concomitant]
     Active Substance: FOLIC ACID
  184. FOLIC ACID [Concomitant]
     Active Substance: FOLIC ACID
  185. FOLIC ACID [Concomitant]
     Active Substance: FOLIC ACID
  186. FOLIC ACID [Concomitant]
     Active Substance: FOLIC ACID
     Route: 048
  187. FOLIC ACID [Concomitant]
     Active Substance: FOLIC ACID
  188. FOLIC ACID [Concomitant]
     Active Substance: FOLIC ACID
  189. FOLIC ACID [Concomitant]
     Active Substance: FOLIC ACID
  190. FOLIC ACID [Concomitant]
     Active Substance: FOLIC ACID
     Route: 048
  191. FOLIC ACID [Concomitant]
     Active Substance: FOLIC ACID
  192. FOLIC ACID [Concomitant]
     Active Substance: FOLIC ACID
     Route: 048
  193. FOLIC ACID [Concomitant]
     Active Substance: FOLIC ACID
     Route: 058
  194. FOLIC ACID [Concomitant]
     Active Substance: FOLIC ACID
     Route: 048
  195. FOSAMAX [Concomitant]
     Active Substance: ALENDRONATE SODIUM
     Indication: Rheumatoid arthritis
     Route: 005
  196. FOSAMAX [Concomitant]
     Active Substance: ALENDRONATE SODIUM
     Route: 048
  197. FOSAMAX [Concomitant]
     Active Substance: ALENDRONATE SODIUM
  198. FOSAMAX [Concomitant]
     Active Substance: ALENDRONATE SODIUM
     Route: 016
  199. FOSAMAX [Concomitant]
     Active Substance: ALENDRONATE SODIUM
     Route: 058
  200. GOLD [Concomitant]
     Active Substance: GOLD
     Indication: Product used for unknown indication
  201. GOLD SODIUM THIOMALATE [Concomitant]
     Active Substance: GOLD SODIUM THIOMALATE
     Indication: Product used for unknown indication
  202. GOLIMUMAB [Concomitant]
     Active Substance: GOLIMUMAB
     Indication: Rheumatoid arthritis
  203. GOLIMUMAB [Concomitant]
     Active Substance: GOLIMUMAB
     Indication: Prostatic specific antigen
     Route: 058
  204. GOLIMUMAB [Concomitant]
     Active Substance: GOLIMUMAB
  205. GOLIMUMAB [Concomitant]
     Active Substance: GOLIMUMAB
     Route: 058
  206. GOLIMUMAB [Concomitant]
     Active Substance: GOLIMUMAB
     Route: 058
  207. GOLIMUMAB [Concomitant]
     Active Substance: GOLIMUMAB
  208. HUMIRA [Concomitant]
     Active Substance: ADALIMUMAB
     Indication: Rheumatoid arthritis
     Route: 058
  209. HUMIRA [Concomitant]
     Active Substance: ADALIMUMAB
  210. HUMIRA [Concomitant]
     Active Substance: ADALIMUMAB
     Dosage: SOLUTION SUBCUTANEOUS
  211. HUMIRA [Concomitant]
     Active Substance: ADALIMUMAB
     Route: 058
  212. HUMIRA [Concomitant]
     Active Substance: ADALIMUMAB
  213. HUMIRA [Concomitant]
     Active Substance: ADALIMUMAB
     Route: 058
  214. HUMIRA [Concomitant]
     Active Substance: ADALIMUMAB
     Route: 058
  215. HUMIRA [Concomitant]
     Active Substance: ADALIMUMAB
  216. HUMIRA [Concomitant]
     Active Substance: ADALIMUMAB
     Route: 058
  217. HUMIRA [Concomitant]
     Active Substance: ADALIMUMAB
     Route: 058
  218. HUMIRA [Concomitant]
     Active Substance: ADALIMUMAB
  219. HUMIRA [Concomitant]
     Active Substance: ADALIMUMAB
  220. HUMIRA [Concomitant]
     Active Substance: ADALIMUMAB
     Dosage: SOLUTION SUBCUTANEOUS
  221. HYDROCORTISONE [Concomitant]
     Active Substance: HYDROCORTISONE
     Indication: Product used for unknown indication
  222. HYDROXYCHLOROQUINE [Concomitant]
     Active Substance: HYDROXYCHLOROQUINE
     Indication: Rheumatoid arthritis
  223. HYDROXYCHLOROQUINE [Concomitant]
     Active Substance: HYDROXYCHLOROQUINE
     Route: 048
  224. HYDROXYCHLOROQUINE [Concomitant]
     Active Substance: HYDROXYCHLOROQUINE
  225. HYDROXYCHLOROQUINE [Concomitant]
     Active Substance: HYDROXYCHLOROQUINE
     Route: 058
  226. HYDROXYCHLOROQUINE [Concomitant]
     Active Substance: HYDROXYCHLOROQUINE
     Route: 048
  227. HYDROXYCHLOROQUINE [Concomitant]
     Active Substance: HYDROXYCHLOROQUINE
  228. HYDROXYCHLOROQUINE [Concomitant]
     Active Substance: HYDROXYCHLOROQUINE
     Route: 048
  229. HYDROXYCHLOROQUINE [Concomitant]
     Active Substance: HYDROXYCHLOROQUINE
     Route: 058
  230. HYDROXYCHLOROQUINE [Concomitant]
     Active Substance: HYDROXYCHLOROQUINE
     Route: 048
  231. HYDROXYCHLOROQUINE [Concomitant]
     Active Substance: HYDROXYCHLOROQUINE
     Route: 048
  232. HYDROXYCHLOROQUINE [Concomitant]
     Active Substance: HYDROXYCHLOROQUINE
     Route: 048
  233. HYDROXYCHLOROQUINE [Concomitant]
     Active Substance: HYDROXYCHLOROQUINE
  234. HYDROXYCHLOROQUINE [Concomitant]
     Active Substance: HYDROXYCHLOROQUINE
     Route: 048
  235. HYDROXYCHLOROQUINE [Concomitant]
     Active Substance: HYDROXYCHLOROQUINE
     Route: 005
  236. HYDROXYCHLOROQUINE [Concomitant]
     Active Substance: HYDROXYCHLOROQUINE
  237. HYDROXYCHLOROQUINE [Concomitant]
     Active Substance: HYDROXYCHLOROQUINE
     Route: 016
  238. HYDROXYCHLOROQUINE [Concomitant]
     Active Substance: HYDROXYCHLOROQUINE
     Route: 048
  239. HYDROXYCHLOROQUINE SULFATE [Concomitant]
     Active Substance: HYDROXYCHLOROQUINE SULFATE
     Indication: Rheumatoid arthritis
  240. HYDROXYCHLOROQUINE SULFATE [Concomitant]
     Active Substance: HYDROXYCHLOROQUINE SULFATE
     Route: 048
  241. HYDROXYCHLOROQUINE SULFATE [Concomitant]
     Active Substance: HYDROXYCHLOROQUINE SULFATE
  242. HYDROXYCHLOROQUINE SULFATE [Concomitant]
     Active Substance: HYDROXYCHLOROQUINE SULFATE
  243. HYDROXYCHLOROQUINE SULFATE [Concomitant]
     Active Substance: HYDROXYCHLOROQUINE SULFATE
     Route: 048
  244. HYDROXYCHLOROQUINE SULFATE [Concomitant]
     Active Substance: HYDROXYCHLOROQUINE SULFATE
  245. HYDROXYCHLOROQUINE SULFATE [Concomitant]
     Active Substance: HYDROXYCHLOROQUINE SULFATE
     Route: 048
  246. HYDROXYCHLOROQUINE SULFATE [Concomitant]
     Active Substance: HYDROXYCHLOROQUINE SULFATE
     Route: 005
  247. HYDROXYCHLOROQUINE SULFATE [Concomitant]
     Active Substance: HYDROXYCHLOROQUINE SULFATE
  248. HYDROXYCHLOROQUINE SULFATE [Concomitant]
     Active Substance: HYDROXYCHLOROQUINE SULFATE
  249. HYDROXYCHLOROQUINE SULFATE [Concomitant]
     Active Substance: HYDROXYCHLOROQUINE SULFATE
     Route: 005
  250. HYDROXYCHLOROQUINE SULFATE [Concomitant]
     Active Substance: HYDROXYCHLOROQUINE SULFATE
  251. HYDROXYCHLOROQUINE SULFATE [Concomitant]
     Active Substance: HYDROXYCHLOROQUINE SULFATE
     Route: 048
  252. HYDROXYCHLOROQUINE SULFATE [Concomitant]
     Active Substance: HYDROXYCHLOROQUINE SULFATE
     Route: 058
  253. HYDROXYCHLOROQUINE SULFATE [Concomitant]
     Active Substance: HYDROXYCHLOROQUINE SULFATE
     Route: 048
  254. HYDROXYCHLOROQUINE SULFATE [Concomitant]
     Active Substance: HYDROXYCHLOROQUINE SULFATE
     Route: 048
  255. HYDROXYCHLOROQUINE SULFATE [Concomitant]
     Active Substance: HYDROXYCHLOROQUINE SULFATE
     Route: 016
  256. INFLIXIMAB [Concomitant]
     Active Substance: INFLIXIMAB
     Indication: Rheumatoid arthritis
  257. INFLIXIMAB [Concomitant]
     Active Substance: INFLIXIMAB
     Route: 040
  258. INFLIXIMAB [Concomitant]
     Active Substance: INFLIXIMAB
     Route: 040
  259. INFLIXIMAB [Concomitant]
     Active Substance: INFLIXIMAB
     Route: 041
  260. INFLIXIMAB [Concomitant]
     Active Substance: INFLIXIMAB
     Route: 041
  261. LAMICTAL [Concomitant]
     Active Substance: LAMOTRIGINE
     Indication: Product used for unknown indication
     Route: 048
  262. LAMICTAL [Concomitant]
     Active Substance: LAMOTRIGINE
     Route: 048
  263. LAMICTAL [Concomitant]
     Active Substance: LAMOTRIGINE
     Route: 048
  264. LAMICTAL [Concomitant]
     Active Substance: LAMOTRIGINE
     Route: 048
  265. LEFLUNOMIDE [Concomitant]
     Active Substance: LEFLUNOMIDE
     Indication: Rheumatoid arthritis
  266. LEFLUNOMIDE [Concomitant]
     Active Substance: LEFLUNOMIDE
  267. LEFLUNOMIDE [Concomitant]
     Active Substance: LEFLUNOMIDE
  268. LEFLUNOMIDE [Concomitant]
     Active Substance: LEFLUNOMIDE
  269. LEFLUNOMIDE [Concomitant]
     Active Substance: LEFLUNOMIDE
     Route: 048
  270. LEFLUNOMIDE [Concomitant]
     Active Substance: LEFLUNOMIDE
  271. LEFLUNOMIDE [Concomitant]
     Active Substance: LEFLUNOMIDE
  272. LEFLUNOMIDE [Concomitant]
     Active Substance: LEFLUNOMIDE
  273. LEFLUNOMIDE [Concomitant]
     Active Substance: LEFLUNOMIDE
  274. LEFLUNOMIDE [Concomitant]
     Active Substance: LEFLUNOMIDE
  275. MEGLUMINE [Concomitant]
     Active Substance: MEGLUMINE
     Indication: Product used for unknown indication
     Route: 042
  276. MEGLUMINE [Concomitant]
     Active Substance: MEGLUMINE
     Route: 041
  277. METHOTREXATE [Concomitant]
     Active Substance: METHOTREXATE
     Indication: Rheumatoid arthritis
  278. METHOTREXATE [Concomitant]
     Active Substance: METHOTREXATE
     Route: 058
  279. METHOTREXATE [Concomitant]
     Active Substance: METHOTREXATE
     Route: 058
  280. METHOTREXATE [Concomitant]
     Active Substance: METHOTREXATE
     Route: 013
  281. METHOTREXATE [Concomitant]
     Active Substance: METHOTREXATE
  282. METHOTREXATE [Concomitant]
     Active Substance: METHOTREXATE
  283. METHOTREXATE [Concomitant]
     Active Substance: METHOTREXATE
     Route: 048
  284. METHOTREXATE [Concomitant]
     Active Substance: METHOTREXATE
     Route: 013
  285. METHOTREXATE [Concomitant]
     Active Substance: METHOTREXATE
     Route: 048
  286. METHOTREXATE [Concomitant]
     Active Substance: METHOTREXATE
  287. METHOTREXATE [Concomitant]
     Active Substance: METHOTREXATE
     Route: 048
  288. METHOTREXATE [Concomitant]
     Active Substance: METHOTREXATE
  289. METHOTREXATE [Concomitant]
     Active Substance: METHOTREXATE
  290. METHOTREXATE [Concomitant]
     Active Substance: METHOTREXATE
  291. METHOTREXATE [Concomitant]
     Active Substance: METHOTREXATE
     Route: 048
  292. METHOTREXATE [Concomitant]
     Active Substance: METHOTREXATE
     Route: 048
  293. METHOTREXATE [Concomitant]
     Active Substance: METHOTREXATE
     Route: 058
  294. METHOTREXATE [Concomitant]
     Active Substance: METHOTREXATE
     Route: 048
  295. METHOTREXATE [Concomitant]
     Active Substance: METHOTREXATE
     Route: 016
  296. METHOTREXATE [Concomitant]
     Active Substance: METHOTREXATE
     Route: 048
  297. METHOTREXATE [Concomitant]
     Active Substance: METHOTREXATE
     Route: 048
  298. METHOTREXATE [Concomitant]
     Active Substance: METHOTREXATE
     Route: 013
  299. METHOTREXATE [Concomitant]
     Active Substance: METHOTREXATE
     Route: 048
  300. METHOTREXATE [Concomitant]
     Active Substance: METHOTREXATE
  301. METHOTREXATE [Concomitant]
     Active Substance: METHOTREXATE
  302. METHOTREXATE [Concomitant]
     Active Substance: METHOTREXATE
  303. METHOTREXATE [Concomitant]
     Active Substance: METHOTREXATE
     Route: 058
  304. METHOTREXATE [Concomitant]
     Active Substance: METHOTREXATE
     Route: 058
  305. METHOTREXATE [Concomitant]
     Active Substance: METHOTREXATE
  306. METHOTREXATE [Concomitant]
     Active Substance: METHOTREXATE
     Route: 048
  307. METHOTREXATE [Concomitant]
     Active Substance: METHOTREXATE
  308. METHOTREXATE [Concomitant]
     Active Substance: METHOTREXATE
  309. METHOTREXATE [Concomitant]
     Active Substance: METHOTREXATE
     Route: 048
  310. METHOTREXATE [Concomitant]
     Active Substance: METHOTREXATE
     Route: 048
  311. METHOTREXATE [Concomitant]
     Active Substance: METHOTREXATE
     Route: 048
  312. METHYLPREDNISOLONE [Concomitant]
     Active Substance: METHYLPREDNISOLONE
     Indication: Rheumatoid arthritis
  313. METHYLPREDNISOLONE [Concomitant]
     Active Substance: METHYLPREDNISOLONE
  314. METHYLPREDNISOLONE [Concomitant]
     Active Substance: METHYLPREDNISOLONE
  315. METHYLPREDNISOLONE [Concomitant]
     Active Substance: METHYLPREDNISOLONE
     Route: 048
  316. METHYLPREDNISOLONE [Concomitant]
     Active Substance: METHYLPREDNISOLONE
  317. METHYLPREDNISOLONE [Concomitant]
     Active Substance: METHYLPREDNISOLONE
     Route: 048
  318. METHYLPREDNISOLONE SODIUM SUCCINATE [Concomitant]
     Active Substance: METHYLPREDNISOLONE SODIUM SUCCINATE
     Indication: Product used for unknown indication
  319. MINOCYCLINE [Concomitant]
     Active Substance: MINOCYCLINE HYDROCHLORIDE
     Indication: Product used for unknown indication
  320. MINOCYCLINE HYDROCHLORIDE [Concomitant]
     Active Substance: MINOCYCLINE HYDROCHLORIDE
     Indication: Rheumatoid arthritis
  321. MINOCYCLINE HYDROCHLORIDE [Concomitant]
     Active Substance: MINOCYCLINE HYDROCHLORIDE
     Indication: Product used for unknown indication
  322. MYOCHRYSINE [Concomitant]
     Active Substance: GOLD SODIUM THIOMALATE
     Indication: Rheumatoid arthritis
     Dosage: SOLUTION INTRAMUSCULAR
     Route: 030
  323. MYRBETRIQ [Concomitant]
     Active Substance: MIRABEGRON
     Indication: Product used for unknown indication
  324. MYRBETRIQ [Concomitant]
     Active Substance: MIRABEGRON
  325. MYRBETRIQ [Concomitant]
     Active Substance: MIRABEGRON
     Dosage: TABLET (EXTENDED- RELEASE)
  326. MYRBETRIQ [Concomitant]
     Active Substance: MIRABEGRON
     Dosage: TABLET (EXTENDED- RELEASE)
  327. NAPROXEN [Concomitant]
     Active Substance: NAPROXEN
     Indication: Product used for unknown indication
     Dosage: TABLET (ENTERIC- COATED)
  328. NAPROXEN SODIUM [Concomitant]
     Active Substance: NAPROXEN SODIUM
     Indication: Rheumatoid arthritis
  329. NUCALA [Concomitant]
     Active Substance: MEPOLIZUMAB
     Indication: Product used for unknown indication
  330. OXYCODONE [Concomitant]
     Active Substance: OXYCODONE
     Indication: Product used for unknown indication
  331. OXYCODONE TEREPHTHALATE [Concomitant]
     Active Substance: OXYCODONE TEREPHTHALATE
     Indication: Product used for unknown indication
  332. PHENYLEPHRINE HYDROCHLORIDE [Concomitant]
     Active Substance: PHENYLEPHRINE HYDROCHLORIDE
     Indication: Rheumatoid arthritis
  333. PHENYLEPHRINE HYDROCHLORIDE [Concomitant]
     Active Substance: PHENYLEPHRINE HYDROCHLORIDE
     Route: 048
  334. PHENYLEPHRINE HYDROCHLORIDE [Concomitant]
     Active Substance: PHENYLEPHRINE HYDROCHLORIDE
     Route: 048
  335. PHENYLEPHRINE HYDROCHLORIDE [Concomitant]
     Active Substance: PHENYLEPHRINE HYDROCHLORIDE
     Route: 042
  336. PHENYLEPHRINE HYDROCHLORIDE [Concomitant]
     Active Substance: PHENYLEPHRINE HYDROCHLORIDE
     Route: 058
  337. PHENYLEPHRINE HYDROCHLORIDE [Concomitant]
     Active Substance: PHENYLEPHRINE HYDROCHLORIDE
     Route: 048
  338. PHENYLEPHRINE HYDROCHLORIDE [Concomitant]
     Active Substance: PHENYLEPHRINE HYDROCHLORIDE
  339. PHTHALYLSULFATHIAZOLE [Concomitant]
     Active Substance: PHTHALYLSULFATHIAZOLE
     Indication: Rheumatoid arthritis
     Route: 048
  340. PHTHALYLSULFATHIAZOLE [Concomitant]
     Active Substance: PHTHALYLSULFATHIAZOLE
  341. PHTHALYLSULFATHIAZOLE [Concomitant]
     Active Substance: PHTHALYLSULFATHIAZOLE
     Route: 058
  342. PHTHALYLSULFATHIAZOLE [Concomitant]
     Active Substance: PHTHALYLSULFATHIAZOLE
  343. PHTHALYLSULFATHIAZOLE [Concomitant]
     Active Substance: PHTHALYLSULFATHIAZOLE
     Route: 048
  344. PHTHALYLSULFATHIAZOLE [Concomitant]
     Active Substance: PHTHALYLSULFATHIAZOLE
  345. PHTHALYLSULFATHIAZOLE [Concomitant]
     Active Substance: PHTHALYLSULFATHIAZOLE
  346. PHTHALYLSULFATHIAZOLE [Concomitant]
     Active Substance: PHTHALYLSULFATHIAZOLE
  347. PHTHALYLSULFATHIAZOLE [Concomitant]
     Active Substance: PHTHALYLSULFATHIAZOLE
     Route: 042
  348. PHTHALYLSULFATHIAZOLE [Concomitant]
     Active Substance: PHTHALYLSULFATHIAZOLE
     Route: 048
  349. PHTHALYLSULFATHIAZOLE [Concomitant]
     Active Substance: PHTHALYLSULFATHIAZOLE
     Route: 058
  350. PHTHALYLSULFATHIAZOLE [Concomitant]
     Active Substance: PHTHALYLSULFATHIAZOLE
     Route: 048
  351. PHTHALYLSULFATHIAZOLE [Concomitant]
     Active Substance: PHTHALYLSULFATHIAZOLE
  352. PHTHALYLSULFATHIAZOLE [Concomitant]
     Active Substance: PHTHALYLSULFATHIAZOLE
     Route: 041
  353. PHTHALYLSULFATHIAZOLE [Concomitant]
     Active Substance: PHTHALYLSULFATHIAZOLE
  354. PHTHALYLSULFATHIAZOLE [Concomitant]
     Active Substance: PHTHALYLSULFATHIAZOLE
  355. PHTHALYLSULFATHIAZOLE [Concomitant]
     Active Substance: PHTHALYLSULFATHIAZOLE
     Route: 048
  356. PHTHALYLSULFATHIAZOLE [Concomitant]
     Active Substance: PHTHALYLSULFATHIAZOLE
     Route: 058
  357. PHTHALYLSULFATHIAZOLE [Concomitant]
     Active Substance: PHTHALYLSULFATHIAZOLE
     Route: 048
  358. PHTHALYLSULFATHIAZOLE [Concomitant]
     Active Substance: PHTHALYLSULFATHIAZOLE
  359. PHTHALYLSULFATHIAZOLE [Concomitant]
     Active Substance: PHTHALYLSULFATHIAZOLE
     Route: 041
  360. PREDNISONE [Concomitant]
     Active Substance: PREDNISONE
     Indication: Rheumatoid arthritis
     Route: 048
  361. PREDNISONE [Concomitant]
     Active Substance: PREDNISONE
     Route: 048
  362. PREDNISONE [Concomitant]
     Active Substance: PREDNISONE
  363. PREDNISONE [Concomitant]
     Active Substance: PREDNISONE
  364. PREDNISONE [Concomitant]
     Active Substance: PREDNISONE
     Route: 048
  365. PREDNISONE [Concomitant]
     Active Substance: PREDNISONE
  366. PREDNISONE [Concomitant]
     Active Substance: PREDNISONE
  367. PREDNISONE [Concomitant]
     Active Substance: PREDNISONE
     Route: 048
  368. PREDNISONE [Concomitant]
     Active Substance: PREDNISONE
  369. PREDNISONE [Concomitant]
     Active Substance: PREDNISONE
     Route: 048
  370. PREDNISONE [Concomitant]
     Active Substance: PREDNISONE
     Route: 048
  371. PSEUDOEPHEDRINE HYDROCHLORIDE [Concomitant]
     Active Substance: PSEUDOEPHEDRINE HYDROCHLORIDE
     Indication: Rheumatoid arthritis
  372. PSEUDOEPHEDRINE HYDROCHLORIDE [Concomitant]
     Active Substance: PSEUDOEPHEDRINE HYDROCHLORIDE
  373. PSEUDOEPHEDRINE HYDROCHLORIDE [Concomitant]
     Active Substance: PSEUDOEPHEDRINE HYDROCHLORIDE
  374. PSEUDOEPHEDRINE HYDROCHLORIDE [Concomitant]
     Active Substance: PSEUDOEPHEDRINE HYDROCHLORIDE
  375. PSEUDOEPHEDRINE HYDROCHLORIDE [Concomitant]
     Active Substance: PSEUDOEPHEDRINE HYDROCHLORIDE
  376. PSEUDOEPHEDRINE HYDROCHLORIDE [Concomitant]
     Active Substance: PSEUDOEPHEDRINE HYDROCHLORIDE
  377. PSEUDOEPHEDRINE HYDROCHLORIDE [Concomitant]
     Active Substance: PSEUDOEPHEDRINE HYDROCHLORIDE
  378. PSEUDOEPHEDRINE HYDROCHLORIDE [Concomitant]
     Active Substance: PSEUDOEPHEDRINE HYDROCHLORIDE
  379. RAMIPRIL [Concomitant]
     Active Substance: RAMIPRIL
     Indication: Rheumatoid arthritis
     Route: 042
  380. RAMIPRIL [Concomitant]
     Active Substance: RAMIPRIL
  381. RAMIPRIL [Concomitant]
     Active Substance: RAMIPRIL
     Route: 016
  382. RANITIDINE [Concomitant]
     Active Substance: RANITIDINE
     Indication: Product used for unknown indication
  383. CETIRIZINE HYDROCHLORIDE\PSEUDOEPHEDRINE HYDROCHLORIDE [Concomitant]
     Active Substance: CETIRIZINE HYDROCHLORIDE\PSEUDOEPHEDRINE HYDROCHLORIDE
     Indication: Rheumatoid arthritis
  384. CETIRIZINE HYDROCHLORIDE\PSEUDOEPHEDRINE HYDROCHLORIDE [Concomitant]
     Active Substance: CETIRIZINE HYDROCHLORIDE\PSEUDOEPHEDRINE HYDROCHLORIDE
  385. CETIRIZINE HYDROCHLORIDE\PSEUDOEPHEDRINE HYDROCHLORIDE [Concomitant]
     Active Substance: CETIRIZINE HYDROCHLORIDE\PSEUDOEPHEDRINE HYDROCHLORIDE
  386. CETIRIZINE HYDROCHLORIDE\PSEUDOEPHEDRINE HYDROCHLORIDE [Concomitant]
     Active Substance: CETIRIZINE HYDROCHLORIDE\PSEUDOEPHEDRINE HYDROCHLORIDE
     Dosage: TABLET (EXTENDED- RELEASE)
     Route: 042
  387. CETIRIZINE HYDROCHLORIDE\PSEUDOEPHEDRINE HYDROCHLORIDE [Concomitant]
     Active Substance: CETIRIZINE HYDROCHLORIDE\PSEUDOEPHEDRINE HYDROCHLORIDE
  388. CETIRIZINE HYDROCHLORIDE\PSEUDOEPHEDRINE HYDROCHLORIDE [Concomitant]
     Active Substance: CETIRIZINE HYDROCHLORIDE\PSEUDOEPHEDRINE HYDROCHLORIDE
  389. CETIRIZINE HYDROCHLORIDE\PSEUDOEPHEDRINE HYDROCHLORIDE [Concomitant]
     Active Substance: CETIRIZINE HYDROCHLORIDE\PSEUDOEPHEDRINE HYDROCHLORIDE
  390. CETIRIZINE HYDROCHLORIDE\PSEUDOEPHEDRINE HYDROCHLORIDE [Concomitant]
     Active Substance: CETIRIZINE HYDROCHLORIDE\PSEUDOEPHEDRINE HYDROCHLORIDE
  391. REMICADE [Concomitant]
     Active Substance: INFLIXIMAB
     Indication: Rheumatoid arthritis
     Route: 058
  392. REMICADE [Concomitant]
     Active Substance: INFLIXIMAB
     Dosage: POWDER FOR SOLUTION INTRAVENOUS
     Route: 042
  393. REMICADE [Concomitant]
     Active Substance: INFLIXIMAB
     Route: 042
  394. REMICADE [Concomitant]
     Active Substance: INFLIXIMAB
     Route: 042
  395. REMICADE [Concomitant]
     Active Substance: INFLIXIMAB
     Route: 042
  396. REMICADE [Concomitant]
     Active Substance: INFLIXIMAB
     Route: 042
  397. REMICADE [Concomitant]
     Active Substance: INFLIXIMAB
  398. REMICADE [Concomitant]
     Active Substance: INFLIXIMAB
     Route: 041
  399. REMICADE [Concomitant]
     Active Substance: INFLIXIMAB
     Route: 041
  400. REMICADE [Concomitant]
     Active Substance: INFLIXIMAB
     Route: 041
  401. REMICADE [Concomitant]
     Active Substance: INFLIXIMAB
     Route: 041
  402. REMICADE [Concomitant]
     Active Substance: INFLIXIMAB
     Route: 041
  403. RITUXIMAB [Concomitant]
     Active Substance: RITUXIMAB
     Indication: Rheumatoid arthritis
     Route: 058
  404. RITUXIMAB [Concomitant]
     Active Substance: RITUXIMAB
  405. RITUXIMAB [Concomitant]
     Active Substance: RITUXIMAB
  406. RITUXIMAB [Concomitant]
     Active Substance: RITUXIMAB
     Route: 043
  407. RITUXIMAB [Concomitant]
     Active Substance: RITUXIMAB
     Route: 042
  408. RITUXIMAB [Concomitant]
     Active Substance: RITUXIMAB
  409. RITUXIMAB [Concomitant]
     Active Substance: RITUXIMAB
     Route: 042
  410. RITUXIMAB [Concomitant]
     Active Substance: RITUXIMAB
     Route: 043
  411. RITUXIMAB [Concomitant]
     Active Substance: RITUXIMAB
  412. RITUXIMAB [Concomitant]
     Active Substance: RITUXIMAB
     Route: 016
  413. RITUXIMAB [Concomitant]
     Active Substance: RITUXIMAB
     Route: 043
  414. RITUXIMAB [Concomitant]
     Active Substance: RITUXIMAB
     Route: 016
  415. RITUXIMAB [Concomitant]
     Active Substance: RITUXIMAB
     Route: 041
  416. RITUXIMAB [Concomitant]
     Active Substance: RITUXIMAB
     Route: 042
  417. RITUXIMAB [Concomitant]
     Active Substance: RITUXIMAB
     Route: 016
  418. RITUXIMAB [Concomitant]
     Active Substance: RITUXIMAB
     Route: 042
  419. RITUXIMAB [Concomitant]
     Active Substance: RITUXIMAB
     Route: 041
  420. RITUXIMAB [Concomitant]
     Active Substance: RITUXIMAB
     Route: 041
  421. RITUXIMAB [Concomitant]
     Active Substance: RITUXIMAB
     Dosage: POWDER FOR SOLUTION INTRAVENOUS
     Route: 041
  422. RITUXIMAB [Concomitant]
     Active Substance: RITUXIMAB
     Route: 041
  423. RITUXIMAB [Concomitant]
     Active Substance: RITUXIMAB
  424. RITUXIMAB [Concomitant]
     Active Substance: RITUXIMAB
     Route: 042
  425. RITUXIMAB [Concomitant]
     Active Substance: RITUXIMAB
     Route: 058
  426. RITUXIMAB [Concomitant]
     Active Substance: RITUXIMAB
     Route: 016
  427. RITUXIMAB [Concomitant]
     Active Substance: RITUXIMAB
     Route: 042
  428. RITUXIMAB [Concomitant]
     Active Substance: RITUXIMAB
     Route: 043
  429. RITUXIMAB [Concomitant]
     Active Substance: RITUXIMAB
  430. RITUXIMAB [Concomitant]
     Active Substance: RITUXIMAB
     Route: 043
  431. RITUXIMAB [Concomitant]
     Active Substance: RITUXIMAB
  432. RITUXIMAB [Concomitant]
     Active Substance: RITUXIMAB
     Route: 042
  433. RITUXIMAB [Concomitant]
     Active Substance: RITUXIMAB
     Route: 058
  434. SULFASALAZINE [Concomitant]
     Active Substance: SULFASALAZINE
     Indication: Rheumatoid arthritis
  435. SIMPONI [Concomitant]
     Active Substance: GOLIMUMAB
     Indication: Rheumatoid arthritis
     Dosage: SOLUTION SUBCUTANEOUS
     Route: 058
  436. SIMPONI [Concomitant]
     Active Substance: GOLIMUMAB
  437. SIMPONI [Concomitant]
     Active Substance: GOLIMUMAB
  438. SIMPONI [Concomitant]
     Active Substance: GOLIMUMAB
  439. SIMPONI [Concomitant]
     Active Substance: GOLIMUMAB
     Route: 058
  440. SIMPONI [Concomitant]
     Active Substance: GOLIMUMAB
     Route: 058
  441. SIMPONI [Concomitant]
     Active Substance: GOLIMUMAB
     Route: 058
  442. SIRUKUMAB [Concomitant]
     Active Substance: SIRUKUMAB
     Indication: Product used for unknown indication
  443. GOLD SODIUM THIOMALATE [Concomitant]
     Active Substance: GOLD SODIUM THIOMALATE
     Indication: Product used for unknown indication
     Route: 048
  444. GOLD SODIUM THIOMALATE [Concomitant]
     Active Substance: GOLD SODIUM THIOMALATE
  445. STELARA [Concomitant]
     Active Substance: USTEKINUMAB
     Indication: Rheumatoid arthritis
  446. STELARA [Concomitant]
     Active Substance: USTEKINUMAB
     Route: 058
  447. SULFASALAZINE [Concomitant]
     Active Substance: SULFASALAZINE
     Indication: Rheumatoid arthritis
  448. SULFASALAZINE [Concomitant]
     Active Substance: SULFASALAZINE
     Route: 058
  449. SULFASALAZINE [Concomitant]
     Active Substance: SULFASALAZINE
     Route: 048
  450. SULFASALAZINE [Concomitant]
     Active Substance: SULFASALAZINE
  451. SULFASALAZINE [Concomitant]
     Active Substance: SULFASALAZINE
     Route: 058
  452. SULFASALAZINE [Concomitant]
     Active Substance: SULFASALAZINE
     Route: 048
  453. SULFASALAZINE [Concomitant]
     Active Substance: SULFASALAZINE
     Route: 058
  454. SULFASALAZINE [Concomitant]
     Active Substance: SULFASALAZINE
     Route: 048
  455. SULFASALAZINE [Concomitant]
     Active Substance: SULFASALAZINE
     Route: 048
  456. SULFASALAZINE [Concomitant]
     Active Substance: SULFASALAZINE
     Route: 058
  457. SULFASALAZINE [Concomitant]
     Active Substance: SULFASALAZINE
     Route: 016
  458. SULFASALAZINE [Concomitant]
     Active Substance: SULFASALAZINE
  459. SULFASALAZINE [Concomitant]
     Active Substance: SULFASALAZINE
     Route: 048
  460. SULFASALAZINE [Concomitant]
     Active Substance: SULFASALAZINE
     Route: 048
  461. SULFASALAZINE [Concomitant]
     Active Substance: SULFASALAZINE
     Route: 048
  462. SULFASALAZINE [Concomitant]
     Active Substance: SULFASALAZINE
  463. SULFASALAZINE [Concomitant]
     Active Substance: SULFASALAZINE
     Route: 048
  464. SULFASALAZINE [Concomitant]
     Active Substance: SULFASALAZINE
     Route: 058
  465. SULFASALAZINE [Concomitant]
     Active Substance: SULFASALAZINE
  466. SULFASALAZINE [Concomitant]
     Active Substance: SULFASALAZINE
     Route: 058
  467. SULFASALAZINE [Concomitant]
     Active Substance: SULFASALAZINE
     Route: 048
  468. SULFASALAZINE [Concomitant]
     Active Substance: SULFASALAZINE
     Route: 058
  469. SULFASALAZINE [Concomitant]
     Active Substance: SULFASALAZINE
     Route: 058
  470. SULFASALAZINE [Concomitant]
     Active Substance: SULFASALAZINE
     Route: 058
  471. SULFASALAZINE [Concomitant]
     Active Substance: SULFASALAZINE
     Route: 048
  472. SULFASALAZINE [Concomitant]
     Active Substance: SULFASALAZINE
     Route: 058
  473. SULFASALAZINE [Concomitant]
     Active Substance: SULFASALAZINE
     Route: 048
  474. SULFASALAZINE [Concomitant]
     Active Substance: SULFASALAZINE
     Route: 058
  475. SULFASALAZINE [Concomitant]
     Active Substance: SULFASALAZINE
     Route: 048
  476. SULFASALAZINE [Concomitant]
     Active Substance: SULFASALAZINE
     Route: 016
  477. SULFASALAZINE [Concomitant]
     Active Substance: SULFASALAZINE
  478. SULFASALAZINE [Concomitant]
     Active Substance: SULFASALAZINE
  479. SULFASALAZINE [Concomitant]
     Active Substance: SULFASALAZINE
     Route: 048
  480. SULFASALAZINE [Concomitant]
     Active Substance: SULFASALAZINE
     Route: 048
  481. SULFASALAZINE [Concomitant]
     Active Substance: SULFASALAZINE
     Route: 048
  482. SULFASALAZINE [Concomitant]
     Active Substance: SULFASALAZINE
     Route: 058
  483. SULFASALAZINE [Concomitant]
     Active Substance: SULFASALAZINE
     Route: 048
  484. SULFASALAZINE [Concomitant]
     Active Substance: SULFASALAZINE
  485. TOCILIZUMAB [Concomitant]
     Active Substance: TOCILIZUMAB
     Indication: Rheumatoid arthritis
     Route: 042
  486. TOCILIZUMAB [Concomitant]
     Active Substance: TOCILIZUMAB
  487. TOCILIZUMAB [Concomitant]
     Active Substance: TOCILIZUMAB
     Route: 058
  488. TOCILIZUMAB [Concomitant]
     Active Substance: TOCILIZUMAB
     Route: 058
  489. TOCILIZUMAB [Concomitant]
     Active Substance: TOCILIZUMAB
     Route: 016
  490. TOCILIZUMAB [Concomitant]
     Active Substance: TOCILIZUMAB
     Route: 042
  491. TOCILIZUMAB [Concomitant]
     Active Substance: TOCILIZUMAB
  492. TOCILIZUMAB [Concomitant]
     Active Substance: TOCILIZUMAB
     Route: 041
  493. TOCILIZUMAB [Concomitant]
     Active Substance: TOCILIZUMAB
  494. TOCILIZUMAB [Concomitant]
     Active Substance: TOCILIZUMAB
     Route: 041
  495. TOCILIZUMAB [Concomitant]
     Active Substance: TOCILIZUMAB
  496. TOCILIZUMAB [Concomitant]
     Active Substance: TOCILIZUMAB
     Route: 058
  497. TOFACITINIB [Concomitant]
     Active Substance: TOFACITINIB
     Indication: Rheumatoid arthritis
  498. TOFACITINIB CITRATE [Concomitant]
     Active Substance: TOFACITINIB CITRATE
     Indication: Rheumatoid arthritis
     Route: 048
  499. TOFACITINIB CITRATE [Concomitant]
     Active Substance: TOFACITINIB CITRATE
  500. TOFACITINIB CITRATE [Concomitant]
     Active Substance: TOFACITINIB CITRATE
  501. TOPIRAMATE [Concomitant]
     Active Substance: TOPIRAMATE
     Indication: Migraine
  502. TOPIRAMATE [Concomitant]
     Active Substance: TOPIRAMATE
  503. TOPIRAMATE [Concomitant]
     Active Substance: TOPIRAMATE
  504. TOPIRAMATE [Concomitant]
     Active Substance: TOPIRAMATE
  505. TRAMADOL HYDROCHLORIDE [Concomitant]
     Active Substance: TRAMADOL HYDROCHLORIDE
     Indication: Product used for unknown indication
  506. TRAMADOL HYDROCHLORIDE [Concomitant]
     Active Substance: TRAMADOL HYDROCHLORIDE
     Dosage: SUSPENSION INTRA-ARTICULAR
     Route: 014
  507. USTEKINUMAB [Concomitant]
     Active Substance: USTEKINUMAB
     Indication: Product used for unknown indication
  508. USTEKINUMAB [Concomitant]
     Active Substance: USTEKINUMAB
     Route: 058
  509. USTEKINUMAB [Concomitant]
     Active Substance: USTEKINUMAB
     Route: 058
  510. USTEKINUMAB [Concomitant]
     Active Substance: USTEKINUMAB
  511. VITAMIN C [Concomitant]
     Active Substance: ASCORBIC ACID
     Indication: Product used for unknown indication
  512. XELJANZ [Concomitant]
     Active Substance: TOFACITINIB CITRATE
     Indication: Rheumatoid arthritis
  513. XELJANZ [Concomitant]
     Active Substance: TOFACITINIB CITRATE
     Route: 048
  514. XELJANZ [Concomitant]
     Active Substance: TOFACITINIB CITRATE
  515. XELJANZ [Concomitant]
     Active Substance: TOFACITINIB CITRATE
  516. XELJANZ [Concomitant]
     Active Substance: TOFACITINIB CITRATE
  517. XELJANZ [Concomitant]
     Active Substance: TOFACITINIB CITRATE
     Route: 048
  518. XELJANZ [Concomitant]
     Active Substance: TOFACITINIB CITRATE
  519. XELJANZ [Concomitant]
     Active Substance: TOFACITINIB CITRATE
     Route: 048
  520. METFORMIN HYDROCHLORIDE [Concomitant]
     Active Substance: METFORMIN HYDROCHLORIDE
     Indication: Product used for unknown indication
     Route: 040
  521. TETRACYCLINE HYDROCHLORIDE [Concomitant]
     Active Substance: TETRACYCLINE HYDROCHLORIDE
     Indication: Rheumatoid arthritis
  522. TETRACYCLINE HYDROCHLORIDE [Concomitant]
     Active Substance: TETRACYCLINE HYDROCHLORIDE
     Dosage: POWDER FOR SOLUTION ORAL
  523. AZATHIOPRINE [Concomitant]
     Active Substance: AZATHIOPRINE
     Indication: Product used for unknown indication
  524. HYRIMOZ [Concomitant]
     Active Substance: ADALIMUMAB-ADAZ
     Indication: Rheumatoid arthritis
     Dosage: SUBDERMAL
  525. HYRIMOZ [Concomitant]
     Active Substance: ADALIMUMAB-ADAZ
     Dosage: SUBDERMAL
     Route: 058
  526. HYRIMOZ [Concomitant]
     Active Substance: ADALIMUMAB-ADAZ
     Route: 058
  527. HYRIMOZ [Concomitant]
     Active Substance: ADALIMUMAB-ADAZ
     Dosage: SUBDERMAL
  528. HYRIMOZ [Concomitant]
     Active Substance: ADALIMUMAB-ADAZ
     Dosage: SUBDERMAL
     Route: 058
  529. ALENDRONATE SODIUM [Concomitant]
     Active Substance: ALENDRONATE SODIUM
     Indication: Rheumatoid arthritis
     Route: 016
  530. ALENDRONATE SODIUM [Concomitant]
     Active Substance: ALENDRONATE SODIUM
     Route: 005
  531. ALENDRONATE SODIUM [Concomitant]
     Active Substance: ALENDRONATE SODIUM
     Route: 048
  532. APREMILAST [Concomitant]
     Active Substance: APREMILAST
     Indication: Product used for unknown indication
  533. LEFLUNOMIDE [Concomitant]
     Active Substance: LEFLUNOMIDE
     Indication: Rheumatoid arthritis
  534. LEFLUNOMIDE [Concomitant]
     Active Substance: LEFLUNOMIDE
  535. LEFLUNOMIDE [Concomitant]
     Active Substance: LEFLUNOMIDE
  536. DICLOFENAC [Concomitant]
     Active Substance: DICLOFENAC
     Indication: Migraine
     Route: 058
  537. DICLOFENAC [Concomitant]
     Active Substance: DICLOFENAC
  538. DICLOFENAC [Concomitant]
     Active Substance: DICLOFENAC

REACTIONS (17)
  - Back injury [Unknown]
  - Gait inability [Unknown]
  - Obesity [Unknown]
  - Off label use [Unknown]
  - Osteoarthritis [Unknown]
  - Paraesthesia [Unknown]
  - Peripheral swelling [Unknown]
  - Peripheral venous disease [Unknown]
  - Product quality issue [Unknown]
  - Stomatitis [Unknown]
  - Taste disorder [Unknown]
  - Urticaria [Unknown]
  - Weight increased [Unknown]
  - Wheezing [Unknown]
  - Wound infection [Unknown]
  - Adverse event [Unknown]
  - Hospitalisation [Unknown]
